FAERS Safety Report 10710927 (Version 1)
Quarter: 2015Q1

REPORT INFORMATION
  Report Type: Spontaneous
  Country: US (occurrence: None)
  Receive Date: 20150113
  Receipt Date: 20150113
  Transmission Date: 20150721
  Serious: Yes (Death, Hospitalization)
  Sender: FDA-Public Use
  Company Number: BD-2014-0158

PATIENT
  Age: 16 Year
  Sex: Female

DRUGS (1)
  1. DIPHENHYDRAMINE (DIPHENHYDRAMINE) [Suspect]
     Active Substance: DIPHENHYDRAMINE
     Indication: ANTIALLERGIC THERAPY
     Dosage: 4500 MG, ONE TIME DOSE
     Route: 048

REACTIONS (15)
  - Suicide attempt [None]
  - Dyskinesia [None]
  - Unresponsive to stimuli [None]
  - Toxicity to various agents [None]
  - Drug screen positive [None]
  - Brain oedema [None]
  - Intentional overdose [None]
  - Blood pH decreased [None]
  - Tachycardia [None]
  - Foaming at mouth [None]
  - Seizure [None]
  - Hypertension [None]
  - Electrocardiogram QRS complex prolonged [None]
  - Status epilepticus [None]
  - Electrocardiogram QT prolonged [None]
